FAERS Safety Report 7737841-9 (Version None)
Quarter: 2011Q3

REPORT INFORMATION
  Report Type: 
  Country: None (occurrence: None)
  Receive Date: 20110908
  Receipt Date: 20110830
  Transmission Date: 20111222
  Serious: Yes (Other)
  Sender: FDA-Public Use
  Company Number: PHHY2011US76696

PATIENT
  Age: 49 Year
  Sex: Female

DRUGS (6)
  1. METHOTREXATE [Suspect]
     Indication: LANGERHANS' CELL HISTIOCYTOSIS
  2. CYCLOPHOSPHAMIDE [Suspect]
     Indication: LANGERHANS' CELL HISTIOCYTOSIS
  3. VINBLASTINE SULFATE [Suspect]
     Indication: LANGERHANS' CELL HISTIOCYTOSIS
     Dosage: UNK
  4. PUVA [Suspect]
     Indication: LANGERHANS' CELL HISTIOCYTOSIS
  5. FLUDARABINE PHOSPHATE [Suspect]
     Indication: LANGERHANS' CELL HISTIOCYTOSIS
  6. CLADRIBINE [Suspect]
     Indication: LANGERHANS' CELL HISTIOCYTOSIS

REACTIONS (7)
  - SKIN LESION [None]
  - SKIN TOXICITY [None]
  - SKIN DISORDER [None]
  - DRUG INEFFECTIVE [None]
  - NEUTROPENIA [None]
  - PAIN [None]
  - NEUROPATHY PERIPHERAL [None]
